FAERS Safety Report 6297876-2 (Version None)
Quarter: 2009Q3

REPORT INFORMATION
  Report Type: 
  Country: None (occurrence: None)
  Receive Date: 20090805
  Receipt Date: 20090728
  Transmission Date: 20100115
  Serious: Yes (Death, Hospitalization, Other)
  Sender: FDA-Public Use
  Company Number: TR-ELI_LILLY_AND_COMPANY-TR200907006586

PATIENT
  Age: 26 Year
  Sex: Female

DRUGS (7)
  1. LISPRO [Suspect]
     Indication: TYPE 1 DIABETES MELLITUS
  2. HUMULIN R [Suspect]
     Indication: TYPE 1 DIABETES MELLITUS
     Dosage: UNK, UNKNOWN
  3. HUMULIN R [Suspect]
     Dosage: DECREASED
  4. HUMULIN R [Suspect]
     Dosage: 1000 IU, DAILY (1/D)
     Route: 042
  5. HUMULIN R [Suspect]
     Dosage: 40-50 U, DECREASED
  6. CORTICOSTEROIDS [Concomitant]
     Indication: ASTHMA
  7. INSULIN [Concomitant]

REACTIONS (5)
  - ANAPHYLACTIC REACTION [None]
  - DIABETIC KETOACIDOSIS [None]
  - DRUG HYPERSENSITIVITY [None]
  - SERUM SICKNESS-LIKE REACTION [None]
  - TYPE III IMMUNE COMPLEX MEDIATED REACTION [None]
